FAERS Safety Report 6332645-6 (Version None)
Quarter: 2009Q3

REPORT INFORMATION
  Report Type: 
  Country: None (occurrence: None)
  Receive Date: 20090828
  Receipt Date: 20090819
  Transmission Date: 20100115
  Serious: Yes (Other)
  Sender: FDA-Public Use
  Company Number: US-JNJFOC-20090807096

PATIENT
  Sex: Male
  Weight: 104.33 kg

DRUGS (8)
  1. TYLENOL W/ CODEINE [Suspect]
     Indication: BACK PAIN
     Route: 065
  2. TYLENOL (CAPLET) [Suspect]
     Route: 065
  3. TYLENOL (CAPLET) [Suspect]
     Indication: BACK PAIN
     Route: 065
  4. TAPENTADOL HYDROCHLORIDE [Concomitant]
     Indication: BACK PAIN
     Route: 048
  5. MORPHINE [Concomitant]
     Indication: BACK PAIN
     Route: 048
  6. DIAZEPAM [Concomitant]
  7. OXYCODONE [Concomitant]
     Indication: BACK PAIN
     Route: 048
  8. AMOXICILLIN [Concomitant]
     Indication: SWELLING FACE
     Route: 065

REACTIONS (4)
  - HEPATIC CIRRHOSIS [None]
  - HEPATITIS C [None]
  - LIVER DISORDER [None]
  - POOR DENTAL CONDITION [None]
